FAERS Safety Report 9204800 (Version 4)
Quarter: 2015Q1

REPORT INFORMATION
  Report Type: Spontaneous
  Country: US (occurrence: US)
  Receive Date: 20130402
  Receipt Date: 20150331
  Transmission Date: 20150721
  Serious: No
  Sender: FDA-Public Use
  Company Number: US-009507513-1303USA014345

PATIENT
  Sex: Male
  Weight: 90.7 kg

DRUGS (1)
  1. PROPECIA [Suspect]
     Active Substance: FINASTERIDE
     Indication: ALOPECIA
     Dosage: 1 MG, QD
     Route: 048
     Dates: start: 19990128, end: 20120913

REACTIONS (8)
  - Gastrooesophageal reflux disease [Unknown]
  - Sexual dysfunction [Not Recovered/Not Resolved]
  - Erectile dysfunction [Unknown]
  - Pollakiuria [Unknown]
  - Musculoskeletal pain [Unknown]
  - Cognitive disorder [Not Recovered/Not Resolved]
  - Loss of libido [Unknown]
  - Neck pain [Unknown]

NARRATIVE: CASE EVENT DATE: 19990128
